FAERS Safety Report 13857298 (Version 4)
Quarter: 2018Q1

REPORT INFORMATION
  Report Type: Report from Study
  Country: US (occurrence: US)
  Receive Date: 20170810
  Receipt Date: 20180125
  Transmission Date: 20180508
  Serious: No
  Sender: FDA-Public Use
  Company Number: US-AMGEN-USASL2017098182

PATIENT
  Age: 62 Year
  Sex: Female

DRUGS (1)
  1. REPATHA [Suspect]
     Active Substance: EVOLOCUMAB
     Indication: HYPERCHOLESTEROLAEMIA
     Dosage: 140 MG, Q2WK
     Route: 065

REACTIONS (8)
  - Dizziness [Unknown]
  - Nervousness [Unknown]
  - Head discomfort [Unknown]
  - Feeling abnormal [Unknown]
  - Muscle spasms [Unknown]
  - Influenza [Unknown]
  - Tremor [Unknown]
  - Blood pressure increased [Recovered/Resolved]
